FAERS Safety Report 14455223 (Version 1)
Quarter: 2018Q1

REPORT INFORMATION
  Report Type: Spontaneous
  Country: US (occurrence: US)
  Receive Date: 20180129
  Receipt Date: 20180129
  Transmission Date: 20180509
  Serious: No
  Sender: FDA-Public Use
  Company Number: US-BIOGEN-2018BI00514819

PATIENT
  Age: 36 Year
  Sex: Female

DRUGS (1)
  1. TYSABRI [Suspect]
     Active Substance: NATALIZUMAB
     Indication: MULTIPLE SCLEROSIS
     Route: 042
     Dates: start: 20170829

REACTIONS (6)
  - Nasopharyngitis [Unknown]
  - Pain [Unknown]
  - Influenza [Unknown]
  - Ear infection [Unknown]
  - Tympanic membrane perforation [Unknown]
  - Fatigue [Unknown]

NARRATIVE: CASE EVENT DATE: 201712
